FAERS Safety Report 9188113 (Version 1)
Quarter: 2013Q1

REPORT INFORMATION
  Report Type: Spontaneous
  Country: TR (occurrence: TR)
  Receive Date: 20130325
  Receipt Date: 20130325
  Transmission Date: 20140127
  Serious: Yes (Hospitalization)
  Sender: FDA-Public Use
  Company Number: TR-GLAXOSMITHKLINE-B0877523A

PATIENT
  Age: 55 Year
  Sex: Male
  Weight: 77 kg

DRUGS (1)
  1. BUPROPION [Suspect]
     Indication: EX-TOBACCO USER
     Dosage: 150MG PER DAY
     Route: 048

REACTIONS (25)
  - Thrombotic thrombocytopenic purpura [Recovering/Resolving]
  - Diarrhoea [Unknown]
  - Malaise [Unknown]
  - Renal failure acute [Unknown]
  - Confusional state [Unknown]
  - Abnormal behaviour [Unknown]
  - Depression [Unknown]
  - Apathy [Unknown]
  - Decreased appetite [Unknown]
  - Disorientation [Unknown]
  - Aphasia [Unknown]
  - Staring [Unknown]
  - Platelet count decreased [Unknown]
  - Hyperbilirubinaemia [Unknown]
  - Blood lactate dehydrogenase increased [Unknown]
  - Blood urea increased [Unknown]
  - Blood creatine increased [Unknown]
  - Haemolytic anaemia [Unknown]
  - Thrombocytopenia [Unknown]
  - Grand mal convulsion [Unknown]
  - Loss of consciousness [Unknown]
  - Endotracheal intubation [Unknown]
  - Anuria [Unknown]
  - Anxiety [Unknown]
  - Pneumonia [Unknown]
